FAERS Safety Report 8846482 (Version 2)
Quarter: 2012Q4

REPORT INFORMATION
  Report Type: 
  Country: US (occurrence: US)
  Receive Date: 20121017
  Receipt Date: 20121126
  Transmission Date: 20130627
  Serious: Yes (Hospitalization, Other)
  Sender: FDA-Public Use
  Company Number: US-009507513-2010SP056217

PATIENT

DRUGS (4)
  1. NUVARING [Suspect]
     Indication: CONTRACEPTION
     Route: 067
     Dates: start: 200611, end: 200810
  2. NUVARING [Suspect]
     Indication: VAGINAL HAEMORRHAGE
  3. NUVARING [Suspect]
     Indication: UTERINE ENLARGEMENT
  4. SYNTHROID [Concomitant]
     Indication: HYPOTHYROIDISM
     Dosage: 112 ?g, QD

REACTIONS (20)
  - Uterine leiomyoma [Unknown]
  - Arachnoid cyst [Unknown]
  - Deep vein thrombosis [Unknown]
  - Pelvic venous thrombosis [Unknown]
  - Pulmonary embolism [Unknown]
  - Bronchitis [Unknown]
  - Sinusitis [Not Recovered/Not Resolved]
  - Haemangioma of liver [Unknown]
  - Spider vein [Not Recovered/Not Resolved]
  - Urinary tract infection [Unknown]
  - Fibrocystic breast disease [Unknown]
  - Breast cyst [Unknown]
  - Vascular operation [Unknown]
  - Vena cava filter insertion [Unknown]
  - Embolism venous [Unknown]
  - Congenital arterial malformation [Unknown]
  - Hypoprothrombinaemia [Unknown]
  - Coagulopathy [Unknown]
  - Nervous system disorder [Unknown]
  - Blood cholesterol increased [Unknown]
